FAERS Safety Report 13877400 (Version 3)
Quarter: 2017Q3

REPORT INFORMATION
  Report Type: Spontaneous
  Country: JP (occurrence: JP)
  Receive Date: 20170817
  Receipt Date: 20170914
  Transmission Date: 20171127
  Serious: Yes (Other)
  Sender: FDA-Public Use
  Company Number: JP-PFIZER INC-2017351653

PATIENT
  Sex: Female
  Weight: 42.5 kg

DRUGS (2)
  1. INLYTA [Suspect]
     Active Substance: AXITINIB
     Dosage: 4 MG, DAILY
  2. INLYTA [Suspect]
     Active Substance: AXITINIB
     Dosage: 6 MG, DAILY

REACTIONS (6)
  - Decreased appetite [Unknown]
  - Diabetes mellitus inadequate control [Unknown]
  - Diarrhoea [Unknown]
  - Haemoglobin decreased [Unknown]
  - Neoplasm progression [Unknown]
  - Cell marker increased [Unknown]
